FAERS Safety Report 12523256 (Version 4)
Quarter: 2016Q3

REPORT INFORMATION
  Report Type: Report from Study
  Country: IT (occurrence: IT)
  Receive Date: 20160702
  Receipt Date: 20160809
  Transmission Date: 20161109
  Serious: Yes (Hospitalization)
  Sender: FDA-Public Use
  Company Number: IT-ACCORD-042014

PATIENT
  Age: 66 Year
  Sex: Male

DRUGS (8)
  1. BETAMETHASONE. [Concomitant]
     Active Substance: BETAMETHASONE
  2. ZALTRAP [Suspect]
     Active Substance: ZIV-AFLIBERCEPT
     Indication: COLORECTAL CANCER METASTATIC
     Dosage: SOLUTION FOR INFUSION.?RECEIVED 320 MG ON 19-NOV-2015.?RECEIVED 280 MG ON 23-MAR-2016.
     Route: 041
     Dates: start: 20160323
  3. IRINOTECAN [Suspect]
     Active Substance: IRINOTECAN
     Indication: COLORECTAL CANCER METASTATIC
     Dosage: RECEIVED 340 MG ON 19-NOV-2015.?RECEIVED 310 MG ON 23-MAR-2016.
     Route: 041
     Dates: start: 20160323
  4. DEXAMETHASONE. [Concomitant]
     Active Substance: DEXAMETHASONE
  5. PALONOSETRON/PALONOSETRON HYDROCHLORIDE [Concomitant]
  6. ATROPINE. [Concomitant]
     Active Substance: ATROPINE
  7. FLUOROURACIL. [Suspect]
     Active Substance: FLUOROURACIL
     Indication: COLORECTAL CANCER METASTATIC
     Dosage: RECEIVED IV BOLUS 756 MG AND IV DRIP 2268 MG ON 19-NOV-2015.?RECEIVED IV DRIP 4160 MG ON 23-MAR-201
     Route: 040
     Dates: start: 20160323
  8. FOLINIC ACID [Suspect]
     Active Substance: LEUCOVORIN
     Indication: COLORECTAL CANCER METASTATIC
     Dosage: RECEIVED IV DRIP LEUCOVORIN AT DOSE OF 378 MG ON 19-NOV-2015
     Route: 041
     Dates: start: 20160323

REACTIONS (6)
  - Vomiting [Recovered/Resolved]
  - Nausea [Recovered/Resolved]
  - Diarrhoea haemorrhagic [Recovered/Resolved]
  - Oral pain [Recovered/Resolved]
  - Abdominal pain [Recovered/Resolved]
  - Asthenia [Recovered/Resolved]

NARRATIVE: CASE EVENT DATE: 20160406
